FAERS Safety Report 9845307 (Version 1)
Quarter: 2014Q1

REPORT INFORMATION
  Report Type: Spontaneous
  Country: US (occurrence: US)
  Receive Date: 20140127
  Receipt Date: 20140127
  Transmission Date: 20141002
  Serious: No
  Sender: FDA-Public Use
  Company Number: US-BAUSCH-BL-2013-002689

PATIENT
  Age: 65 Year
  Sex: Male

DRUGS (1)
  1. ZYLET (LOTEPREDNOL ETABONATE 0.5% AND TOBRAMYCIN 0.3% OPHTHALMIC SUSPE [Suspect]
     Indication: EYE INFECTION
     Dosage: ONE DROP INTO LEFT EYE THREE TIMES DAILY
     Route: 047
     Dates: start: 20130503, end: 20130505

REACTIONS (3)
  - Pyrexia [Recovered/Resolved]
  - Eye swelling [Recovered/Resolved]
  - Ocular hyperaemia [Recovered/Resolved]
